FAERS Safety Report 11147085 (Version 3)
Quarter: 2017Q1

REPORT INFORMATION
  Report Type: Report from Study
  Country: US (occurrence: US)
  Receive Date: 20150528
  Receipt Date: 20170315
  Transmission Date: 20170428
  Serious: Yes (Other)
  Sender: FDA-Public Use
  Company Number: US-SA-2015SA072833

PATIENT
  Sex: Female

DRUGS (4)
  1. SOLOSTAR [Concomitant]
     Active Substance: DEVICE
     Dates: start: 20070306, end: 20170217
  2. SOLOSTAR [Concomitant]
     Active Substance: DEVICE
     Dates: start: 20070101
  3. LANTUS SOLOSTAR [Suspect]
     Active Substance: INSULIN GLARGINE
     Indication: DIABETES MELLITUS
     Dosage: DOSE: 120
     Route: 058
     Dates: start: 20070101
  4. LANTUS SOLOSTAR [Suspect]
     Active Substance: INSULIN GLARGINE
     Indication: DIABETES MELLITUS
     Dosage: DOSE:80 UNIT(S)
     Route: 058
     Dates: start: 20070306, end: 20170217

REACTIONS (10)
  - Cardiac failure congestive [Recovered/Resolved]
  - Myocardial infarction [Unknown]
  - Depression [Unknown]
  - Intervertebral disc disorder [Unknown]
  - Irritable bowel syndrome [Unknown]
  - Blood glucose abnormal [Unknown]
  - Gastrooesophageal reflux disease [Unknown]
  - Systemic lupus erythematosus [Unknown]
  - Activities of daily living impaired [Unknown]
  - Intentional product misuse [Unknown]
